FAERS Safety Report 19035402 (Version 1)
Quarter: 2021Q1

REPORT INFORMATION
  Report Type: Other
  Country: US (occurrence: US)
  Receive Date: 20210320
  Receipt Date: 20210320
  Transmission Date: 20210420
  Serious: No
  Sender: FDA-Public Use
  Company Number: US-ACORDA-ACO_167571_2021

PATIENT
  Sex: Male

DRUGS (2)
  1. INBRIJA [Suspect]
     Active Substance: LEVODOPA
     Indication: PARKINSON^S DISEASE
     Dosage: 84 MILLIGRAM, PRN (2 CAPSULES OF 42MG AS NEEDED) NOT TO EXCEED 5 DOSES PER DAY
  2. INBRIJA [Suspect]
     Active Substance: LEVODOPA
     Indication: ON AND OFF PHENOMENON

REACTIONS (9)
  - Restlessness [Unknown]
  - Fatigue [Unknown]
  - Tremor [Unknown]
  - Nervousness [Unknown]
  - Anxiety [Unknown]
  - Feeling jittery [Unknown]
  - Device use issue [Unknown]
  - Sleep disorder [Unknown]
  - Insomnia [Unknown]
